FAERS Safety Report 5537977-7 (Version None)
Quarter: 2007Q4

REPORT INFORMATION
  Report Type: 
  Country: None (occurrence: None)
  Receive Date: 20071207
  Receipt Date: 20071125
  Transmission Date: 20080405
  Serious: Yes (Other)
  Sender: FDA-Public Use
  Company Number: US-PFIZER INC-2007100621

PATIENT
  Sex: Female
  Weight: 68.181 kg

DRUGS (1)
  1. CHANTIX [Suspect]
     Indication: EX-SMOKER
     Dates: start: 20071015, end: 20071118

REACTIONS (7)
  - ABDOMINAL PAIN UPPER [None]
  - CARDIAC FLUTTER [None]
  - CHEST PAIN [None]
  - HEADACHE [None]
  - HYPERHIDROSIS [None]
  - LIMB INJURY [None]
  - MOOD SWINGS [None]
